FAERS Safety Report 26010430 (Version 1)
Quarter: 2025Q4

REPORT INFORMATION
  Report Type: Spontaneous
  Country: BR (occurrence: BR)
  Receive Date: 20251107
  Receipt Date: 20251107
  Transmission Date: 20260117
  Serious: Yes (Hospitalization, Other)
  Sender: ALEXION PHARMACEUTICALS
  Company Number: BR-AstraZeneca-CH-00984650A

PATIENT
  Age: 79 Year
  Sex: Male
  Weight: 50 kg

DRUGS (1)
  1. TAGRISSO [Suspect]
     Active Substance: OSIMERTINIB
     Indication: Adenocarcinoma
     Dosage: 80 MILLIGRAM

REACTIONS (9)
  - Opportunistic infection [Not Recovered/Not Resolved]
  - Diverticulum intestinal [Recovered/Resolved]
  - Hepatic pain [Unknown]
  - Pain [Recovered/Resolved]
  - Onychoclasis [Unknown]
  - Muscle spasms [Unknown]
  - Weight decreased [Unknown]
  - Bowel movement irregularity [Unknown]
  - Pleural effusion [Unknown]

NARRATIVE: CASE EVENT DATE: 20240501
